FAERS Safety Report 8620805-0 (Version None)
Quarter: 2012Q3

REPORT INFORMATION
  Report Type: 
  Country: None (occurrence: None)
  Receive Date: 20120816
  Receipt Date: 20120816
  Transmission Date: 20120928
  Serious: Yes (Other)
  Sender: FDA-Public Use
  Company Number: None

PATIENT
  Age: 62 Year
  Sex: Male
  Weight: 74.3899 kg

DRUGS (1)
  1. ENBREL [Suspect]
     Indication: RHEUMATOID ARTHRITIS
     Dosage: 50 MG, ONCE A WEEK,
     Dates: start: 20120727, end: 20120810

REACTIONS (8)
  - MUSCULAR WEAKNESS [None]
  - HYPOAESTHESIA [None]
  - DRUG HYPERSENSITIVITY [None]
  - DIZZINESS [None]
  - PARAESTHESIA [None]
  - NAUSEA [None]
  - FATIGUE [None]
  - BALANCE DISORDER [None]
